FAERS Safety Report 25789232 (Version 1)
Quarter: 2025Q3

REPORT INFORMATION
  Report Type: Report from Study
  Country: CA (occurrence: CA)
  Receive Date: 20250911
  Receipt Date: 20250911
  Transmission Date: 20251020
  Serious: Yes (Other)
  Sender: TEVA
  Company Number: CA-TEVA-VS-3371719

PATIENT
  Sex: Female

DRUGS (1)
  1. ZOLEDRONIC ACID [Suspect]
     Active Substance: ZOLEDRONIC ACID
     Indication: Osteoporosis
     Dosage: DOSE FORM :SOLUTION INTRAVENOUS
     Route: 065

REACTIONS (4)
  - Pneumonia [Unknown]
  - Temperature regulation disorder [Unknown]
  - Abdominal discomfort [Unknown]
  - Influenza [Unknown]
